FAERS Safety Report 5602107-X (Version None)
Quarter: 2008Q1

REPORT INFORMATION
  Report Type: 
  Country: None (occurrence: None)
  Receive Date: 20080125
  Receipt Date: 20071123
  Transmission Date: 20080703
  Serious: Yes (Hospitalization)
  Sender: FDA-Public Use
  Company Number: FR-JNJFOC-20071109806

PATIENT
  Sex: Female
  Weight: 84.3 kg

DRUGS (4)
  1. INFLIXIMAB [Suspect]
     Indication: PSORIASIS
     Route: 042
  2. ACETAMINOPHEN [Concomitant]
     Route: 048
  3. MIZOLLEN [Concomitant]
     Indication: PRURITUS
     Route: 048
  4. DEXERYL [Concomitant]
     Dosage: DOSE: 1AUR DAILY

REACTIONS (2)
  - ANXIETY [None]
  - ARTHRITIS [None]
